FAERS Safety Report 4322815-0 (Version None)
Quarter: 2004Q1

REPORT INFORMATION
  Report Type: 
  Country: None (occurrence: None)
  Receive Date: 20040324
  Receipt Date: 20040315
  Transmission Date: 20041129
  Serious: Yes (Hospitalization)
  Sender: FDA-Public Use
  Company Number: DE-BRISTOL-MYERS SQUIBB COMPANY-12532594

PATIENT
  Age: 37 Year
  Sex: Female
  Weight: 75 kg

DRUGS (1)
  1. VM-26 [Suspect]
     Indication: ANAPLASTIC ASTROCYTOMA
     Dates: start: 20030619, end: 20030619

REACTIONS (4)
  - COUGH [None]
  - ERYTHEMA [None]
  - HEADACHE [None]
  - OEDEMA [None]
